FAERS Safety Report 6283166-0 (Version None)
Quarter: 2009Q3

REPORT INFORMATION
  Report Type: 
  Country: None (occurrence: None)
  Receive Date: 20090724
  Receipt Date: 20090716
  Transmission Date: 20100115
  Serious: Yes (Hospitalization)
  Sender: FDA-Public Use
  Company Number: B0582981A

PATIENT
  Sex: Female
  Weight: 60 kg

DRUGS (4)
  1. VALTREX [Suspect]
     Indication: HERPES ZOSTER
     Dosage: 1000MG THREE TIMES PER DAY
     Route: 048
     Dates: start: 20090703, end: 20090704
  2. FLUITRAN [Concomitant]
     Dosage: 2MG PER DAY
     Route: 048
  3. ALDACTONE [Concomitant]
     Dosage: 25MG PER DAY
     Route: 048
  4. NITOROL R [Concomitant]
     Indication: ANGINA PECTORIS
     Dosage: 40MG PER DAY
     Route: 048

REACTIONS (2)
  - GAIT DISTURBANCE [None]
  - MUSCULOSKELETAL PAIN [None]
